FAERS Safety Report 7960937-3 (Version None)
Quarter: 2011Q4

REPORT INFORMATION
  Report Type: 
  Country: None (occurrence: None)
  Receive Date: 20111202
  Receipt Date: 20111117
  Transmission Date: 20120403
  Serious: Yes (Hospitalization)
  Sender: FDA-Public Use
  Company Number: DSM-2011-00803

PATIENT
  Age: 49 Year
  Sex: Male

DRUGS (20)
  1. VITAMIN B1 B6 BAYER (THIAMINE PYRIDOXINE) (TABLET) (THIAMINE PYRIDOXIN [Suspect]
     Indication: PRODUCT USED FOR UNKNOWN INDICATION
     Dosage: 6 DOSAGE FORMS (2 DOSAGE FORMS,3 IN 1 D),ORAL
     Route: 048
     Dates: start: 20110628, end: 20110712
  2. OLMESARTAN MEDOXOMIL [Suspect]
     Indication: PRODUCT USED FOR UNKNOWN INDICATION
     Dosage: ORAL ; 20 MG (20 MG,1 IN 1 D),ORAL
     Route: 048
     Dates: end: 20110621
  3. OLMESARTAN MEDOXOMIL [Suspect]
     Indication: PRODUCT USED FOR UNKNOWN INDICATION
     Dosage: ORAL ; 20 MG (20 MG,1 IN 1 D),ORAL
     Route: 048
     Dates: start: 20110625, end: 20110712
  4. PANTOPRAZOLE [Suspect]
     Indication: PRODUCT USED FOR UNKNOWN INDICATION
     Dosage: 40 MG,INTRAVENOUS (NOT OTHERWISE SPECIFIED) ; 40 MG,INTRAVENOUS (NOT OTHERWISE SPECIFIED)
     Route: 042
     Dates: start: 20110625, end: 20110628
  5. PANTOPRAZOLE [Suspect]
     Indication: PRODUCT USED FOR UNKNOWN INDICATION
     Dosage: 40 MG,INTRAVENOUS (NOT OTHERWISE SPECIFIED) ; 40 MG,INTRAVENOUS (NOT OTHERWISE SPECIFIED)
     Route: 042
     Dates: start: 20110624, end: 20110630
  6. TRAMADOL HYDROCHLORIDE [Suspect]
     Indication: PAIN
     Dosage: (1 DOSAGE FORMS,IF NEEDED)
     Dates: start: 20110623, end: 20110624
  7. KARDEGIC (ACETYLSALICYLATE LYSINE) (ACETYLSALICYLATE LYSINE) [Suspect]
     Indication: PRODUCT USED FOR UNKNOWN INDICATION
     Dosage: 75 MG (75 MG,1 IN 1 D),ORAL
     Route: 048
     Dates: start: 20110625, end: 20110705
  8. KARDEGIC (ACETYLSALICYLATE LYSINE) (ACETYLSALICYLATE LYSINE) [Suspect]
     Indication: PRODUCT USED FOR UNKNOWN INDICATION
     Dosage: 75 MG (75 MG,1 IN 1 D),ORAL
     Route: 048
     Dates: end: 20110621
  9. ZOLPIDEM [Suspect]
     Indication: PRODUCT USED FOR UNKNOWN INDICATION
     Dosage: 10 MG
     Dates: start: 20110628, end: 20110701
  10. KETOPROFEN [Suspect]
     Indication: PRODUCT USED FOR UNKNOWN INDICATION
     Dosage: ORAL
     Route: 048
     Dates: end: 20110621
  11. PHLOROGLUCINOL ARROW (PHLOROGLUCINOL) (PHLOROGLUCINOL) [Suspect]
     Indication: PRODUCT USED FOR UNKNOWN INDICATION
     Dosage: 480 MG (80 MG,1 IN 4 HR),ORAL
     Route: 048
     Dates: start: 20110627, end: 20110629
  12. VITABECT (PICLOXYDINE DIHYDROCHLORIDE) (EYE DROPS) (PICLOXYDINE DIHYDR [Suspect]
     Indication: PRODUCT USED FOR UNKNOWN INDICATION
     Dosage: (1 GTT,1 DROP IN EACH EYE EVERY 4 HOURS),OPHTHALMIC
     Route: 047
     Dates: start: 20110627, end: 20110710
  13. CEFTRIAXONE [Suspect]
     Indication: PRODUCT USED FOR UNKNOWN INDICATION
     Dosage: 1 GM,INTRAVENOUS (NOT OTHERWISE SPECIFIED)
     Route: 042
     Dates: start: 20110626, end: 20110630
  14. ESOMEPRAZOLE MAGNESIUM [Suspect]
     Indication: PRODUCT USED FOR UNKNOWN INDICATION
     Dosage: 40 MG (40 MG,1 IN 1 D),ORAL
     Route: 048
     Dates: start: 20110629, end: 20110702
  15. ACETAMINOPHEN [Suspect]
     Indication: PRODUCT USED FOR UNKNOWN INDICATION
     Dosage: 4 GM (1 GM,4 IN 1 D),ORAL
     Route: 048
     Dates: end: 20110621
  16. LANSOPRAZOLE [Suspect]
     Indication: PRODUCT USED FOR UNKNOWN INDICATION
     Dosage: 10 MG
     Dates: end: 20110621
  17. LOVENOX [Suspect]
     Indication: PRODUCT USED FOR UNKNOWN INDICATION
     Dosage: 4000 IU,SUBCUTANEOUS
     Route: 058
     Dates: start: 20110624, end: 20110630
  18. SULFASALAZINE [Suspect]
     Indication: BURSITIS
     Dosage: 1000 MG (1000 MG,1 IN 1 D),ORAL
     Route: 048
     Dates: end: 20110601
  19. BISOPROLOL FUMARATE [Suspect]
     Indication: PRODUCT USED FOR UNKNOWN INDICATION
     Dosage: 10 MG (10 MG,1 IN 1 D),ORAL
     Route: 048
     Dates: start: 20110625, end: 20110712
  20. BISOPROLOL FUMARATE [Suspect]
     Indication: PRODUCT USED FOR UNKNOWN INDICATION
     Dosage: 10 MG (10 MG,1 IN 1 D),ORAL
     Route: 048
     Dates: end: 20110621

REACTIONS (6)
  - FEBRILE NEUTROPENIA [None]
  - DRUG RASH WITH EOSINOPHILIA AND SYSTEMIC SYMPTOMS [None]
  - AGRANULOCYTOSIS [None]
  - CYTOLYTIC HEPATITIS [None]
  - TOXICITY TO VARIOUS AGENTS [None]
  - LIVER INJURY [None]
